FAERS Safety Report 6528522-8 (Version None)
Quarter: 2009Q4

REPORT INFORMATION
  Report Type: 
  Country: None (occurrence: None)
  Receive Date: 20091230
  Receipt Date: 19890116
  Transmission Date: 20100525
  Serious: Yes (Hospitalization)
  Sender: FDA-Public Use
  Company Number: DSA_42224_2009

PATIENT
  Age: 19 Year
  Sex: Male

DRUGS (2)
  1. DILTIAZEM HYDROCHLORIDE           (DILTIAZEM HYDROCHLORIDE) 60 MG [Suspect]
     Indication: POISONING
     Dosage: (1800 MG 1X ORAL)
     Route: 048
     Dates: start: 19890105
  2. ACETYSALICYLIC ACID [Concomitant]

REACTIONS (5)
  - DRUG ABUSE [None]
  - DRUG TOXICITY [None]
  - HYPOTENSION [None]
  - INTENTIONAL OVERDOSE [None]
  - SUICIDE ATTEMPT [None]
